FAERS Safety Report 18518068 (Version 1)
Quarter: 2020Q4

REPORT INFORMATION
  Report Type: Spontaneous
  Country: US (occurrence: US)
  Receive Date: 20201118
  Receipt Date: 20201118
  Transmission Date: 20210114
  Serious: No
  Sender: FDA-Public Use
  Company Number: US-PFIZER INC-2020451426

PATIENT
  Age: 41 Year
  Sex: Male
  Weight: 72.48 kg

DRUGS (2)
  1. CHANTIX [Suspect]
     Active Substance: VARENICLINE TARTRATE
     Indication: SMOKING CESSATION THERAPY
     Dosage: 0.5 MG
     Dates: start: 2015
  2. CHANTIX [Suspect]
     Active Substance: VARENICLINE TARTRATE
     Dosage: 1 MG
     Dates: start: 2015

REACTIONS (2)
  - Body height decreased [Unknown]
  - Tobacco user [Unknown]

NARRATIVE: CASE EVENT DATE: 2015
